FAERS Safety Report 25268672 (Version 1)
Quarter: 2025Q2

REPORT INFORMATION
  Report Type: Spontaneous
  Country: GB (occurrence: GB)
  Receive Date: 20250505
  Receipt Date: 20250505
  Transmission Date: 20250716
  Serious: Yes (Other)
  Sender: ROCHE
  Company Number: None

PATIENT
  Age: 41 Year
  Sex: Female

DRUGS (3)
  1. OCRELIZUMAB [Suspect]
     Active Substance: OCRELIZUMAB
     Indication: Relapsing-remitting multiple sclerosis
     Dosage: 300 MG / 10 ML SOLUTION FOR INFUSION - 6 MONTHLY INFUSION
     Route: 065
  2. PREGABALIN [Concomitant]
     Active Substance: PREGABALIN
     Dosage: 150 MG CAPSULES ONE TO BE TAKEN TWICE A DAY
  3. AMITRIPTYLINE [Concomitant]
     Active Substance: AMITRIPTYLINE
     Dosage: 10 MG TABLETS UP TO 5 TABLETS AT NIGHT AS REQUIRED

REACTIONS (2)
  - Inflammatory bowel disease [Unknown]
  - Diarrhoea [Unknown]
